FAERS Safety Report 20756714 (Version 3)
Quarter: 2022Q3

REPORT INFORMATION
  Report Type: Spontaneous
  Country: JP (occurrence: JP)
  Receive Date: 20220427
  Receipt Date: 20220729
  Transmission Date: 20221026
  Serious: Yes (Hospitalization)
  Sender: FDA-Public Use
  Company Number: JP-CHUGAI-2022014575

PATIENT
  Age: 74 Year
  Sex: Female
  Weight: 62.3 kg

DRUGS (13)
  1. PERJETA [Suspect]
     Active Substance: PERTUZUMAB
     Indication: Breast cancer
     Dosage: (FORM STRENGTH: 420 MG/14 ML) 840 MILLIGRAM, SINGLE
     Route: 041
     Dates: start: 20220302, end: 20220302
  2. PERJETA [Suspect]
     Active Substance: PERTUZUMAB
     Dosage: 420 MILLIGRAM, ONCE/3WEEKS
     Route: 041
     Dates: start: 20220323, end: 20220412
  3. HERCEPTIN [Suspect]
     Active Substance: TRASTUZUMAB
     Indication: Breast cancer
     Dosage: 416 MILLIGRAM, SINGLE
     Route: 041
     Dates: start: 20220302, end: 20220302
  4. HERCEPTIN [Suspect]
     Active Substance: TRASTUZUMAB
     Dosage: 345 MILLIGRAM
     Route: 041
     Dates: start: 20220323, end: 20220323
  5. HALAVEN [Suspect]
     Active Substance: ERIBULIN MESYLATE
     Indication: Breast cancer
     Dosage: 2 MILLIGRAM
     Route: 041
     Dates: start: 20220323, end: 20220330
  6. PACLITAXEL [Concomitant]
     Active Substance: PACLITAXEL
     Indication: Breast cancer
     Dosage: UNK UNK, SINGLE
     Route: 041
     Dates: start: 20220302, end: 20220302
  7. DEXAMETHASONE SODIUM PHOSPHATE [Concomitant]
     Active Substance: DEXAMETHASONE SODIUM PHOSPHATE
     Dosage: UNK
     Route: 065
     Dates: start: 20220302
  8. ENTECAVIR [Concomitant]
     Active Substance: ENTECAVIR
     Dosage: UNK
     Route: 065
     Dates: start: 20220302
  9. FAMOTIDINE [Concomitant]
     Active Substance: FAMOTIDINE
     Dosage: 20 MG SINGLE
     Route: 065
     Dates: start: 20220302, end: 20220302
  10. FAMOTIDINE [Concomitant]
     Active Substance: FAMOTIDINE
     Dosage: UNK UNK, QD
     Route: 065
     Dates: start: 20220412, end: 20220413
  11. POLARAMINE [Concomitant]
     Active Substance: DEXCHLORPHENIRAMINE MALEATE
     Dosage: 5 MG, SINGLE
     Route: 065
     Dates: start: 20220302, end: 20220302
  12. POLARAMINE [Concomitant]
     Active Substance: DEXCHLORPHENIRAMINE MALEATE
     Dosage: UNK UNK, QD
     Route: 065
     Dates: start: 20220412, end: 20220413
  13. HERBALS [Concomitant]
     Active Substance: HERBALS
     Dosage: UNK
     Route: 065
     Dates: start: 20220323

REACTIONS (2)
  - Anaphylactic shock [Recovered/Resolved]
  - Malaise [Unknown]

NARRATIVE: CASE EVENT DATE: 20220412
